FAERS Safety Report 6425810-0 (Version None)
Quarter: 2009Q4

REPORT INFORMATION
  Report Type: 
  Country: None (occurrence: None)
  Receive Date: 20091103
  Receipt Date: 20081119
  Transmission Date: 20100525
  Serious: No
  Sender: FDA-Public Use
  Company Number: US-ABBOTT-08P-163-0489076-00

PATIENT
  Sex: Female

DRUGS (3)
  1. BIAXIN [Suspect]
     Indication: INFECTION
  2. GALENIC /FEXOFENADINE HCL/PSEUDOEPHEDRINE/ [Concomitant]
     Indication: HYPERSENSITIVITY
     Dates: start: 20040101
  3. FEXOFENADINE [Concomitant]
     Indication: HYPERSENSITIVITY
     Dates: start: 20040101

REACTIONS (1)
  - ABDOMINAL DISCOMFORT [None]
